FAERS Safety Report 14800894 (Version 4)
Quarter: 2018Q2

REPORT INFORMATION
  Report Type: Spontaneous
  Country: DE (occurrence: DE)
  Receive Date: 20180424
  Receipt Date: 20180622
  Transmission Date: 20180711
  Serious: Yes (Hospitalization)
  Sender: FDA-Public Use
  Company Number: DE-ROCHE-2112322

PATIENT
  Age: 48 Year
  Sex: Male
  Weight: 85.3 kg

DRUGS (3)
  1. APIXABAN [Concomitant]
     Active Substance: APIXABAN
     Indication: PRODUCT USED FOR UNKNOWN INDICATION
     Dosage: 10 MILLIGRAM DAILY; 5 MG, TWICE DAILY (1-0-1-0)
     Route: 048
  2. RITUXIMAB. [Suspect]
     Active Substance: RITUXIMAB
     Indication: PRODUCT USED FOR UNKNOWN INDICATION
     Route: 042
  3. BENDAMUSTINE [Suspect]
     Active Substance: BENDAMUSTINE
     Indication: PRODUCT USED FOR UNKNOWN INDICATION
     Route: 042

REACTIONS (8)
  - Cough [Unknown]
  - Pyrexia [Unknown]
  - Upper respiratory tract irritation [Unknown]
  - B-cell lymphoma [Unknown]
  - Febrile neutropenia [Unknown]
  - Headache [Unknown]
  - Rhinitis [Unknown]
  - Myalgia [Unknown]
